FAERS Safety Report 23889054 (Version 1)
Quarter: 2024Q2

REPORT INFORMATION
  Report Type: Spontaneous
  Country: US (occurrence: None)
  Receive Date: 20240523
  Receipt Date: 20240523
  Transmission Date: 20240716
  Serious: Yes (Hospitalization)
  Sender: FDA-Public Use
  Company Number: None

PATIENT
  Age: 64 Year
  Sex: Female
  Weight: 70.8 kg

DRUGS (1)
  1. XELODA [Suspect]
     Active Substance: CAPECITABINE

REACTIONS (5)
  - Pyrexia [None]
  - Chronic obstructive pulmonary disease [None]
  - Hypotension [None]
  - Chondrocalcinosis [None]
  - Sinus tachycardia [None]

NARRATIVE: CASE EVENT DATE: 20240519
